FAERS Safety Report 5445135-X (Version None)
Quarter: 2007Q3

REPORT INFORMATION
  Report Type: 
  Country: None (occurrence: None)
  Receive Date: 20070906
  Receipt Date: 20070828
  Transmission Date: 20080115
  Serious: Yes (Other)
  Sender: FDA-Public Use
  Company Number: AU-PFIZER INC-2007069605

PATIENT
  Sex: Male

DRUGS (7)
  1. CELEBREX [Suspect]
     Indication: OSTEOARTHRITIS
     Route: 048
  2. CARDIZEM [Concomitant]
  3. LIPITOR [Concomitant]
  4. KARVEA [Concomitant]
  5. ZOTON [Concomitant]
  6. ASTRIX [Concomitant]
  7. ADVIL LIQUI-GELS [Concomitant]

REACTIONS (2)
  - BLOOD PRESSURE [None]
  - OEDEMA PERIPHERAL [None]
